FAERS Safety Report 21499333 (Version 1)
Quarter: 2022Q4

REPORT INFORMATION
  Report Type: Report from Study
  Country: US (occurrence: US)
  Receive Date: 20221024
  Receipt Date: 20221024
  Transmission Date: 20230113
  Serious: Yes (Death, Other)
  Sender: FDA-Public Use
  Company Number: US-BAYER-2022A142079

PATIENT
  Age: 7 Year
  Sex: Female

DRUGS (8)
  1. SORAFENIB [Suspect]
     Active Substance: SORAFENIB
     Indication: Acute myeloid leukaemia
     Dosage: UNK
  2. AZACITIDINE [Concomitant]
     Active Substance: AZACITIDINE
  3. DECITABINE [Concomitant]
     Active Substance: DECITABINE
     Dosage: UNK
  4. BORTEZOMIB [Concomitant]
     Active Substance: BORTEZOMIB
     Dosage: 1.3 MG/M2
     Route: 042
  5. PANOBINOSTAT [Concomitant]
     Active Substance: PANOBINOSTAT
     Dosage: 20 MG
     Route: 048
  6. DEXAMETHASONE [Concomitant]
     Active Substance: DEXAMETHASONE
     Dosage: 10 MG/M2
     Route: 048
  7. CYTARABINE [Concomitant]
     Active Substance: CYTARABINE
  8. DAUNORUBICIN [Concomitant]
     Active Substance: DAUNORUBICIN

REACTIONS (9)
  - Aspergillus infection [Fatal]
  - Staphylococcal infection [Fatal]
  - Enterococcal infection [Fatal]
  - Pseudomonas infection [Fatal]
  - Epstein-Barr virus infection [Fatal]
  - Bone marrow disorder [None]
  - Blast cells present [None]
  - Pancytopenia [None]
  - Off label use [None]
